FAERS Safety Report 9174043 (Version 1)
Quarter: 2013Q1

REPORT INFORMATION
  Report Type: Spontaneous
  Country: US (occurrence: None)
  Receive Date: 20130318
  Receipt Date: 20130318
  Transmission Date: 20140127
  Serious: Yes (Other)
  Sender: FDA-Public Use
  Company Number: None

PATIENT
  Age: 39 Year
  Sex: Male
  Weight: 99.79 kg

DRUGS (1)
  1. PRILOSEC [Suspect]
     Indication: GASTROOESOPHAGEAL REFLUX DISEASE
     Dosage: 2X DAILY
     Dates: start: 20130215, end: 20130309

REACTIONS (4)
  - Myocardial infarction [None]
  - Apparent life threatening event [None]
  - Blood magnesium decreased [None]
  - Blood potassium decreased [None]
